FAERS Safety Report 7769092-6 (Version None)
Quarter: 2011Q3

REPORT INFORMATION
  Report Type: 
  Country: None (occurrence: None)
  Receive Date: 20110922
  Receipt Date: 20100517
  Transmission Date: 20111222
  Serious: No
  Sender: FDA-Public Use
  Company Number: US-ASTRAZENECA-2010SE44737

PATIENT
  Age: 633 Month
  Sex: Female

DRUGS (5)
  1. RISPERDAL [Concomitant]
     Dates: start: 20030110
  2. LEXAPRO [Concomitant]
     Dosage: 10 MG-40 MG DAILY
     Dates: start: 20030508
  3. SEROQUEL [Suspect]
     Dosage: 100 MG- 400 MG DAILY
     Route: 048
     Dates: start: 20030508
  4. KLONOPIN [Concomitant]
     Dosage: 2 MG DAILY
     Route: 048
     Dates: start: 20030104
  5. LOTREL [Concomitant]
     Dosage: 5/20 MG DISPENSED
     Dates: start: 20030111

REACTIONS (10)
  - HEPATIC CIRRHOSIS [None]
  - PSYCHOTIC DISORDER [None]
  - DIABETES MELLITUS INADEQUATE CONTROL [None]
  - DEPRESSION [None]
  - WEIGHT DECREASED [None]
  - PANIC DISORDER [None]
  - TYPE 2 DIABETES MELLITUS [None]
  - SCHIZOAFFECTIVE DISORDER DEPRESSIVE TYPE [None]
  - WEIGHT INCREASED [None]
  - DYSTHYMIC DISORDER [None]
